FAERS Safety Report 19303859 (Version 1)
Quarter: 2021Q2

REPORT INFORMATION
  Report Type: Spontaneous
  Country: AU (occurrence: AU)
  Receive Date: 20210525
  Receipt Date: 20210525
  Transmission Date: 20210717
  Serious: Yes (Other)
  Sender: FDA-Public Use
  Company Number: AU-SA-2021SA172568

PATIENT
  Age: 20 Year
  Sex: Male

DRUGS (1)
  1. DUPIXENT [Suspect]
     Active Substance: DUPILUMAB
     Dosage: UNK
     Route: 065
     Dates: start: 201912

REACTIONS (4)
  - Erythema [Unknown]
  - Suicidal ideation [Unknown]
  - Flushing [Unknown]
  - Depressed mood [Unknown]

NARRATIVE: CASE EVENT DATE: 201912
